FAERS Safety Report 8200171-5 (Version None)
Quarter: 2012Q1

REPORT INFORMATION
  Report Type: 
  Country: None (occurrence: None)
  Receive Date: 20120312
  Receipt Date: 20120307
  Transmission Date: 20120608
  Serious: Yes (Other)
  Sender: FDA-Public Use
  Company Number: US-AMGEN-USASP2011062765

PATIENT
  Age: 53 Year
  Sex: Female
  Weight: 51.701 kg

DRUGS (13)
  1. PHOSLO [Concomitant]
     Dosage: UNK
     Dates: start: 20070517
  2. MIDODRINE HYDROCHLORIDE [Concomitant]
     Dosage: UNK
     Dates: start: 20100101
  3. ARANESP [Concomitant]
     Dosage: UNK
     Dates: start: 20060720
  4. CETIRIZINE [Concomitant]
     Dosage: UNK
     Dates: start: 20100101
  5. PROLIA [Suspect]
     Indication: OSTEOPOROSIS
     Dosage: 60 MG, Q6MO
     Dates: start: 20111018, end: 20111018
  6. FENOFIBRATE [Concomitant]
     Dosage: UNK
     Dates: start: 20060328
  7. HECTOROL [Concomitant]
     Dosage: 5 MUG, 3 TIMES/WK
     Route: 042
     Dates: start: 20110406
  8. MULTI-VITAMIN [Concomitant]
     Dosage: UNK
     Dates: start: 20100526
  9. PRILOSEC [Concomitant]
     Dosage: UNK
     Dates: start: 20110414
  10. VITAMIN D [Concomitant]
     Dosage: 2000 IU, UNK
     Dates: start: 20100526
  11. METOPROLOL SUCCINATE [Concomitant]
     Dosage: UNK
     Dates: start: 20110325
  12. LEVOCARNITINE [Concomitant]
     Dosage: UNK
     Dates: start: 20071201
  13. ASPIRIN [Concomitant]
     Dosage: UNK
     Dates: start: 20110425

REACTIONS (2)
  - BLOOD PARATHYROID HORMONE INCREASED [None]
  - HYPOCALCAEMIA [None]
